FAERS Safety Report 21717924 (Version 1)
Quarter: 2022Q4

REPORT INFORMATION
  Report Type: Spontaneous
  Country: CN (occurrence: CN)
  Receive Date: 20221212
  Receipt Date: 20221212
  Transmission Date: 20230113
  Serious: Yes (Other)
  Sender: FDA-Public Use
  Company Number: CN-GLAXOSMITHKLINE-CN2022APC178026

PATIENT

DRUGS (1)
  1. ADEFOVIR DIPIVOXIL [Suspect]
     Active Substance: ADEFOVIR DIPIVOXIL
     Indication: Hepatitis B
     Dosage: UNK
     Route: 065

REACTIONS (3)
  - Osteoporosis [Unknown]
  - Renal tubular disorder [Unknown]
  - Body height decreased [Unknown]
